FAERS Safety Report 5933358-2 (Version None)
Quarter: 2008Q4

REPORT INFORMATION
  Report Type: 
  Country: None (occurrence: None)
  Receive Date: 20081028
  Receipt Date: 20081016
  Transmission Date: 20090506
  Serious: Yes (Other)
  Sender: FDA-Public Use
  Company Number: PL-PFIZER INC-2008089008

PATIENT
  Age: 62 Year
  Sex: Female

DRUGS (2)
  1. EXEMESTANE [Suspect]
     Indication: BREAST CANCER
     Route: 048
     Dates: start: 20010202, end: 20010717
  2. EXEMESTANE [Suspect]
     Route: 048
     Dates: start: 20010823, end: 20040204

REACTIONS (1)
  - DIABETES MELLITUS [None]
